FAERS Safety Report 13349295 (Version 1)
Quarter: 2017Q1

REPORT INFORMATION
  Report Type: Spontaneous
  Country: DE (occurrence: DE)
  Receive Date: 20170320
  Receipt Date: 20170320
  Transmission Date: 20170428
  Serious: Yes (Life-Threatening, Hospitalization)
  Sender: FDA-Public Use
  Company Number: DE-ROCHE-1892890

PATIENT
  Age: 68 Year
  Sex: Female
  Weight: 71 kg

DRUGS (8)
  1. DEXAMETHASON [Concomitant]
     Active Substance: DEXAMETHASONE
     Dosage: GIVEN PRIOR TO TAXOL
     Route: 042
  2. RANITIDIN [Concomitant]
     Active Substance: RANITIDINE HYDROCHLORIDE
     Dosage: GIVEN PRIOR TO TAXOL
     Route: 042
  3. PERJETA [Suspect]
     Active Substance: PERTUZUMAB
     Dosage: AFTER INITIAL DOSE
     Route: 042
     Dates: end: 20170116
  4. HERCEPTIN [Concomitant]
     Active Substance: TRASTUZUMAB
     Dosage: AFTER LOADING DOSE
     Route: 042
     Dates: end: 20170116
  5. HERCEPTIN [Concomitant]
     Active Substance: TRASTUZUMAB
     Indication: BREAST CANCER
     Dosage: LOADING DOSE
     Route: 042
     Dates: start: 20161205, end: 20161205
  6. PERJETA [Suspect]
     Active Substance: PERTUZUMAB
     Indication: BREAST CANCER
     Dosage: INITIAL DOSE
     Route: 042
     Dates: start: 20161205, end: 20161205
  7. TAXOL [Concomitant]
     Active Substance: PACLITAXEL
     Indication: BREAST CANCER
     Route: 042
     Dates: start: 20161205, end: 20170123
  8. CLEMASTIN [Concomitant]
     Active Substance: CLEMASTINE
     Dosage: GIVEN PRIOR TO TAXOL
     Route: 042

REACTIONS (3)
  - Diarrhoea [Recovered/Resolved]
  - Renal failure [Recovered/Resolved]
  - Hypokalaemia [Recovered/Resolved]

NARRATIVE: CASE EVENT DATE: 20170202
